FAERS Safety Report 11830343 (Version 3)
Quarter: 2015Q4

REPORT INFORMATION
  Report Type: Spontaneous
  Country: US (occurrence: US)
  Receive Date: 20151214
  Receipt Date: 20151214
  Transmission Date: 20160305
  Serious: No
  Sender: FDA-Public Use
  Company Number: US-JNJFOC-20151118935

PATIENT
  Age: 90 Year
  Sex: Male
  Weight: 54.43 kg

DRUGS (2)
  1. TYLENOL [Concomitant]
     Active Substance: ACETAMINOPHEN
     Indication: JOINT INJURY
     Route: 065
     Dates: start: 20151029
  2. LEVAQUIN [Suspect]
     Active Substance: LEVOFLOXACIN
     Indication: PLEURAL EFFUSION
     Route: 042
     Dates: start: 20151115, end: 20151116

REACTIONS (3)
  - Pruritus [Unknown]
  - Pain in extremity [Not Recovered/Not Resolved]
  - Arthralgia [Not Recovered/Not Resolved]

NARRATIVE: CASE EVENT DATE: 20151115
